FAERS Safety Report 7910516-9 (Version None)
Quarter: 2011Q4

REPORT INFORMATION
  Report Type: 
  Country: None (occurrence: None)
  Receive Date: 20111111
  Receipt Date: 20111028
  Transmission Date: 20120403
  Serious: Yes (Hospitalization, Other)
  Sender: FDA-Public Use
  Company Number: PHHY2010CA58942

PATIENT
  Sex: Male

DRUGS (2)
  1. SANDOSTATIN LAR [Suspect]
     Indication: NEUROENDOCRINE CARCINOMA
     Dosage: 20 MG EVERY 4 WEEK
     Route: 030
     Dates: start: 20091028
  2. SANDOSTATIN LAR [Suspect]
     Dosage: 30 MG EVERY 4 WEEKS
     Route: 030

REACTIONS (4)
  - CONSTIPATION [None]
  - INFECTION [None]
  - WEIGHT DECREASED [None]
  - JAUNDICE [None]
